FAERS Safety Report 4661055-2 (Version None)
Quarter: 2005Q2

REPORT INFORMATION
  Report Type: 
  Country: None (occurrence: None)
  Receive Date: 20050511
  Receipt Date: 20050428
  Transmission Date: 20051028
  Serious: Yes (Hospitalization, Other)
  Sender: FDA-Public Use
  Company Number: 2005043864

PATIENT
  Age: 49 Year
  Sex: Female
  Weight: 88.905 kg

DRUGS (8)
  1. NEURONTIN [Suspect]
     Indication: ANXIETY
     Dosage: 1200 MG (600 MG, 2 IN 1 D), ORAL
     Route: 048
     Dates: start: 20030716, end: 20041201
  2. ALL OTHER NON-THERAPEUTIC PRODUCTS (ALL OTHER NON-THERAPEUTIC PRODUCTS [Suspect]
     Indication: ILL-DEFINED DISORDER
     Dates: start: 20041101
  3. LEVOTHYROXINE SODIUM [Concomitant]
  4. ROSUVASTATIN (ROSUVASTATIN) [Concomitant]
  5. VERAPAMIL [Concomitant]
  6. VENLAFAXINE HCL [Concomitant]
  7. CLONAZEPAM [Concomitant]
  8. ZOLPIDEM TARTRATE [Concomitant]

REACTIONS (8)
  - AMNESIA [None]
  - ANXIETY DISORDER [None]
  - CONDITION AGGRAVATED [None]
  - DEPRESSION [None]
  - DYSTHYMIC DISORDER [None]
  - GENERAL PHYSICAL HEALTH DETERIORATION [None]
  - MENTAL DISORDER [None]
  - SUICIDE ATTEMPT [None]
